FAERS Safety Report 20490170 (Version 1)
Quarter: 2022Q1

REPORT INFORMATION
  Report Type: Spontaneous
  Country: US (occurrence: US)
  Receive Date: 20220218
  Receipt Date: 20220218
  Transmission Date: 20220423
  Serious: No
  Sender: FDA-Public Use
  Company Number: US-PFIZER INC-202101105057

PATIENT
  Age: 59 Year
  Sex: Male
  Weight: 70.31 kg

DRUGS (1)
  1. SOMAVERT [Suspect]
     Active Substance: PEGVISOMANT
     Dosage: PRESCRIBED TO BE TAKEN DAILY

REACTIONS (3)
  - Product dose omission issue [Unknown]
  - Intentional product misuse [Unknown]
  - Arthralgia [Unknown]

NARRATIVE: CASE EVENT DATE: 20210701
